FAERS Safety Report 10778726 (Version 1)
Quarter: 2015Q1

REPORT INFORMATION
  Report Type: Spontaneous
  Country: US (occurrence: US)
  Receive Date: 20150210
  Receipt Date: 20150210
  Transmission Date: 20150721
  Serious: No
  Sender: FDA-Public Use
  Company Number: US-GLAXOSMITHKLINE-A1082163A

PATIENT

DRUGS (2)
  1. NO CONCURRENT MEDICATION [Concomitant]
     Active Substance: UNSPECIFIED INGREDIENT
  2. IMITREX [Suspect]
     Active Substance: SUMATRIPTAN\SUMATRIPTAN SUCCINATE
     Indication: MIGRAINE
     Route: 058

REACTIONS (5)
  - Breast pain [Unknown]
  - Chest pain [Recovered/Resolved]
  - Chest discomfort [Unknown]
  - Burning sensation [Unknown]
  - Nipple pain [Unknown]
